FAERS Safety Report 14368046 (Version 5)
Quarter: 2020Q1

REPORT INFORMATION
  Report Type: Spontaneous
  Country: US (occurrence: US)
  Receive Date: 20180109
  Receipt Date: 20200318
  Transmission Date: 20200409
  Serious: Yes (Other)
  Sender: FDA-Public Use
  Company Number: US-PFIZER INC-2018007192

PATIENT
  Age: 56 Year
  Sex: Male
  Weight: 111 kg

DRUGS (4)
  1. REVATIO [Suspect]
     Active Substance: SILDENAFIL CITRATE
     Indication: PULMONARY HYPERTENSION
  2. REVATIO [Suspect]
     Active Substance: SILDENAFIL CITRATE
     Indication: PULMONARY ARTERIAL PRESSURE ABNORMAL
     Dosage: TOOK 2 TABLETS EVERY 8 HOURS
     Route: 048
     Dates: start: 201701
  3. REVATIO [Suspect]
     Active Substance: SILDENAFIL CITRATE
     Indication: RENAL TRANSPLANT
  4. REVATIO [Suspect]
     Active Substance: SILDENAFIL CITRATE
     Indication: HEART TRANSPLANT

REACTIONS (4)
  - Product dose omission [Unknown]
  - Off label use [Unknown]
  - Product use issue [Unknown]
  - Prostate cancer [Not Recovered/Not Resolved]

NARRATIVE: CASE EVENT DATE: 2017
